FAERS Safety Report 11359540 (Version 3)
Quarter: 2015Q3

REPORT INFORMATION
  Report Type: Report from Study
  Country: CA (occurrence: CA)
  Receive Date: 20150807
  Receipt Date: 20150819
  Transmission Date: 20151125
  Serious: Yes (Hospitalization)
  Sender: FDA-Public Use
  Company Number: CA-ABBVIE-15P-028-1439491-00

PATIENT
  Sex: Male
  Weight: 86.7 kg

DRUGS (3)
  1. MODERIBA [Suspect]
     Active Substance: RIBAVIRIN
     Indication: HEPATITIS C
     Route: 048
     Dates: start: 20150528
  2. HOLKIRA PAK [Suspect]
     Active Substance: DASABUVIR\OMBITASVIR\PARITAPREVIR\RITONAVIR
     Indication: HEPATITIS C
     Dosage: 2 CO-FORMULATED TAB AND 1 DASABUVIR TAB IN AM AND 1 DASABUVIR TAB IN PM
     Route: 048
     Dates: start: 20150528
  3. TECTA [Concomitant]
     Active Substance: PANTOPRAZOLE MAGNESIUM
     Indication: PRODUCT USED FOR UNKNOWN INDICATION

REACTIONS (4)
  - Bipolar disorder [Unknown]
  - Stress [Unknown]
  - Suicidal ideation [Unknown]
  - Agitation [Unknown]

NARRATIVE: CASE EVENT DATE: 2015
